FAERS Safety Report 9462358 (Version 1)
Quarter: 2013Q3

REPORT INFORMATION
  Report Type: Spontaneous
  Country: US (occurrence: US)
  Receive Date: 20130816
  Receipt Date: 20130816
  Transmission Date: 20140515
  Serious: Yes (Hospitalization, Other)
  Sender: FDA-Public Use
  Company Number: US-ABBOTT-13P-163-1130527-00

PATIENT
  Age: 47 Year
  Sex: Female
  Weight: 122.58 kg

DRUGS (5)
  1. HUMIRA [Suspect]
     Indication: PSORIASIS
     Dates: start: 2010
  2. LANTUS [Concomitant]
     Indication: DIABETES MELLITUS
     Dates: start: 201304
  3. HUMALOG [Concomitant]
     Indication: DIABETES MELLITUS
     Dates: start: 201304
  4. COLACE [Concomitant]
     Indication: BOWEL MOVEMENT IRREGULARITY
     Dates: start: 201304
  5. HYDROCODONE [Concomitant]
     Indication: PRODUCT USED FOR UNKNOWN INDICATION

REACTIONS (12)
  - Coronary artery thrombosis [Recovering/Resolving]
  - Electrocardiogram abnormal [Unknown]
  - Cardiac arrest [Recovered/Resolved]
  - Coronary artery occlusion [Not Recovered/Not Resolved]
  - Hypoaesthesia [Not Recovered/Not Resolved]
  - Dyspnoea [Not Recovered/Not Resolved]
  - Cardiac failure congestive [Recovering/Resolving]
  - Skin plaque [Not Recovered/Not Resolved]
  - Injection site bruising [Not Recovered/Not Resolved]
  - Anxiety [Unknown]
  - Stress [Unknown]
  - Injection site pain [Not Recovered/Not Resolved]
